FAERS Safety Report 20534074 (Version 1)
Quarter: 2022Q1

REPORT INFORMATION
  Report Type: Other
  Country: CA (occurrence: None)
  Receive Date: 20220301
  Receipt Date: 20220301
  Transmission Date: 20220423
  Serious: Yes (Hospitalization, Other)
  Sender: FDA-Public Use
  Company Number: CA-ROCHE-2879265

PATIENT
  Age: 52 Year
  Sex: Female

DRUGS (2)
  1. OCREVUS [Suspect]
     Active Substance: OCRELIZUMAB
     Indication: Relapsing-remitting multiple sclerosis
     Dosage: 300 MG AT DAY 0 AND 14, THEN 600 MG EVERY 6 MONTH
     Route: 042
     Dates: start: 20180925
  2. GABAPENTIN [Concomitant]
     Active Substance: GABAPENTIN
     Dosage: 300MG HS AND 200MG DURING THE DAY,

REACTIONS (17)
  - Visual impairment [Not Recovered/Not Resolved]
  - Diplopia [Recovered/Resolved]
  - Balance disorder [Not Recovered/Not Resolved]
  - Muscle spasms [Not Recovered/Not Resolved]
  - Electric shock sensation [Not Recovered/Not Resolved]
  - Tic [Not Recovered/Not Resolved]
  - Skin abrasion [Recovered/Resolved]
  - Hypertension [Recovered/Resolved]
  - Eye swelling [Recovering/Resolving]
  - Swelling face [Recovering/Resolving]
  - Impaired driving ability [Not Recovered/Not Resolved]
  - Neuralgia [Recovered/Resolved]
  - SARS-CoV-2 test positive [Not Recovered/Not Resolved]
  - Asthma [Not Recovered/Not Resolved]
  - Sneezing [Not Recovered/Not Resolved]
  - Fall [Unknown]
  - Pneumonia [Recovered/Resolved]

NARRATIVE: CASE EVENT DATE: 20210726
